FAERS Safety Report 4281426-6 (Version None)
Quarter: 2004Q1

REPORT INFORMATION
  Report Type: 
  Country: None (occurrence: None)
  Receive Date: 20040108
  Receipt Date: 20031020
  Transmission Date: 20041129
  Serious: Yes (Other)
  Sender: FDA-Public Use
  Company Number: HQWYE375921OCT03

PATIENT
  Sex: Female

DRUGS (3)
  1. PREMPRO [Suspect]
     Dosage: DOSAGE FOR A NUMBER OF YEARS, ORAL
     Route: 048
  2. PREMARIN [Suspect]
     Dosage: DOSAGE FOR A NUMBER OF YEARS, ORAL
     Route: 048
  3. PROVERA [Suspect]
     Dosage: DOSAGE, ORAL
     Route: 048

REACTIONS (1)
  - BREAST CANCER [None]
